FAERS Safety Report 12752639 (Version 2)
Quarter: 2016Q3

REPORT INFORMATION
  Report Type: Report from Study
  Country: US (occurrence: US)
  Receive Date: 20160916
  Receipt Date: 20160930
  Transmission Date: 20161109
  Serious: Yes (Other)
  Sender: FDA-Public Use
  Company Number: US-AMGEN-USASL2016123136

PATIENT
  Age: 76 Year
  Sex: Female

DRUGS (6)
  1. PROLIA [Suspect]
     Active Substance: DENOSUMAB
     Indication: OSTEOPOROSIS POSTMENOPAUSAL
     Dosage: UNK
     Route: 065
     Dates: start: 2013
  2. FISH OIL [Concomitant]
     Active Substance: FISH OIL
  3. VITAMIN D [Concomitant]
     Active Substance: CHOLECALCIFEROL
  4. CALCIUM [Concomitant]
     Active Substance: CALCIUM
  5. MERCAPTOPURINE. [Concomitant]
     Active Substance: MERCAPTOPURINE
     Indication: CROHN^S DISEASE
  6. BAYER ASPIRIN [Concomitant]
     Active Substance: ASPIRIN
     Dosage: UNK UNK, QOD

REACTIONS (12)
  - Pain in jaw [Not Recovered/Not Resolved]
  - Pruritus [Unknown]
  - Gingival pain [Unknown]
  - Rash [Not Recovered/Not Resolved]
  - Inappropriate schedule of drug administration [Unknown]
  - Endodontic procedure [Unknown]
  - Nipple exudate bloody [Unknown]
  - Feeling hot [Unknown]
  - Swelling [Unknown]
  - Pain [Unknown]
  - Oral pain [Unknown]
  - Erythema [Unknown]

NARRATIVE: CASE EVENT DATE: 201401
